FAERS Safety Report 21064063 (Version 2)
Quarter: 2022Q3

REPORT INFORMATION
  Report Type: Report from Study
  Country: JP (occurrence: JP)
  Receive Date: 20220711
  Receipt Date: 20220720
  Transmission Date: 20221026
  Serious: Yes (Hospitalization)
  Sender: FDA-Public Use
  Company Number: JP-ONO-2022JP014986

PATIENT
  Age: 80 Year
  Sex: Female
  Weight: 33.4 kg

DRUGS (40)
  1. IPILIMUMAB [Suspect]
     Active Substance: IPILIMUMAB
     Indication: Gastric cancer
     Dosage: 19-MAY-2022-LAST DOSE
     Route: 065
     Dates: start: 20220519
  2. IPILIMUMAB [Suspect]
     Active Substance: IPILIMUMAB
  3. CAPECITABINE [Suspect]
     Active Substance: CAPECITABINE
     Indication: Gastric cancer
     Route: 048
     Dates: start: 20220519, end: 20220529
  4. CAPECITABINE [Suspect]
     Active Substance: CAPECITABINE
     Dosage: MOST RECENT DOSE RECEIVED ON 16-JUN-2022.
     Route: 048
     Dates: start: 20220609, end: 20220616
  5. CAPECITABINE [Suspect]
     Active Substance: CAPECITABINE
  6. CAPECITABINE [Suspect]
     Active Substance: CAPECITABINE
  7. OXALIPLATIN [Suspect]
     Active Substance: OXALIPLATIN
     Indication: Gastric cancer
     Route: 065
     Dates: start: 20220519
  8. OXALIPLATIN [Suspect]
     Active Substance: OXALIPLATIN
  9. CELECOXIB [Concomitant]
     Active Substance: CELECOXIB
     Indication: Gastric cancer
     Route: 065
  10. CELECOXIB [Concomitant]
     Active Substance: CELECOXIB
  11. CELECOXIB [Concomitant]
     Active Substance: CELECOXIB
  12. CELECOXIB [Concomitant]
     Active Substance: CELECOXIB
  13. CELECOXIB [Concomitant]
     Active Substance: CELECOXIB
  14. ACETAMINOPHEN [Concomitant]
     Active Substance: ACETAMINOPHEN
     Indication: Gastric cancer
     Dosage: 2000 MG
     Route: 065
  15. ANAMORELIN HYDROCHLORIDE [Concomitant]
     Active Substance: ANAMORELIN HYDROCHLORIDE
     Indication: Gastric cancer
     Dosage: 100 MG
     Route: 048
  16. METOCLOPRAMIDE HYDROCHLORIDE [Concomitant]
     Active Substance: METOCLOPRAMIDE HYDROCHLORIDE
     Indication: Nausea
     Route: 065
     Dates: start: 20220519
  17. METOCLOPRAMIDE HYDROCHLORIDE [Concomitant]
     Active Substance: METOCLOPRAMIDE HYDROCHLORIDE
     Route: 065
     Dates: start: 20220602
  18. METOCLOPRAMIDE HYDROCHLORIDE [Concomitant]
     Active Substance: METOCLOPRAMIDE HYDROCHLORIDE
  19. HEPARINOID [Concomitant]
     Route: 065
     Dates: start: 20220519
  20. HEPARINOID [Concomitant]
     Indication: Product used for unknown indication
  21. HEPARINOID [Concomitant]
  22. DEXAMETHASONE SODIUM PHOSPHATE [Concomitant]
     Active Substance: DEXAMETHASONE SODIUM PHOSPHATE
     Route: 065
     Dates: start: 20220519
  23. DEXAMETHASONE SODIUM PHOSPHATE [Concomitant]
     Active Substance: DEXAMETHASONE SODIUM PHOSPHATE
     Indication: Product used for unknown indication
  24. PALONOSETRON HYDROCHLORIDE [Concomitant]
     Active Substance: PALONOSETRON HYDROCHLORIDE
     Route: 065
     Dates: start: 20220519
  25. PALONOSETRON HYDROCHLORIDE [Concomitant]
     Active Substance: PALONOSETRON HYDROCHLORIDE
     Indication: Product used for unknown indication
  26. PALONOSETRON HYDROCHLORIDE [Concomitant]
     Active Substance: PALONOSETRON HYDROCHLORIDE
  27. RABEPRAZOLE SODIUM [Concomitant]
     Active Substance: RABEPRAZOLE SODIUM
     Indication: Gastric cancer
     Route: 065
     Dates: start: 20220601, end: 20220608
  28. RABEPRAZOLE SODIUM [Concomitant]
     Active Substance: RABEPRAZOLE SODIUM
  29. RABEPRAZOLE SODIUM [Concomitant]
     Active Substance: RABEPRAZOLE SODIUM
  30. HALOPERIDOL [Concomitant]
     Active Substance: HALOPERIDOL
     Indication: Nausea
     Route: 065
     Dates: start: 20220530, end: 20220607
  31. HALOPERIDOL [Concomitant]
     Active Substance: HALOPERIDOL
  32. HALOPERIDOL [Concomitant]
     Active Substance: HALOPERIDOL
  33. MOSAPRIDE CITRATE DIHYDRATE [Concomitant]
     Active Substance: MOSAPRIDE CITRATE DIHYDRATE
     Indication: Gastric cancer
     Dosage: 15 MG
     Route: 065
     Dates: start: 20220603, end: 20220608
  34. FAMOTIDINE [Concomitant]
     Active Substance: FAMOTIDINE
     Indication: Gastric cancer
     Route: 065
     Dates: start: 20220609
  35. FAMOTIDINE [Concomitant]
     Active Substance: FAMOTIDINE
  36. FAMOTIDINE [Concomitant]
     Active Substance: FAMOTIDINE
  37. MAGNESIUM OXIDE [Concomitant]
     Active Substance: MAGNESIUM OXIDE
     Indication: Product used for unknown indication
     Route: 065
  38. MAGNESIUM OXIDE [Concomitant]
     Active Substance: MAGNESIUM OXIDE
  39. EMEND [Concomitant]
     Active Substance: APREPITANT
     Indication: Product used for unknown indication
     Route: 048
     Dates: start: 20220519, end: 20220519
  40. EMEND [Concomitant]
     Active Substance: APREPITANT
     Dosage: 80 MG
     Route: 048
     Dates: start: 20220520, end: 20220520

REACTIONS (2)
  - Malaise [Recovered/Resolved]
  - Decreased appetite [Recovered/Resolved]

NARRATIVE: CASE EVENT DATE: 20220530
